FAERS Safety Report 24966428 (Version 5)
Quarter: 2025Q4

REPORT INFORMATION
  Report Type: Spontaneous
  Country: US (occurrence: US)
  Receive Date: 20250213
  Receipt Date: 20251219
  Transmission Date: 20260118
  Serious: Yes (Hospitalization)
  Sender: VERTEX
  Company Number: US-VERTEX PHARMACEUTICALS-2025-002164

PATIENT

DRUGS (4)
  1. TRIKAFTA [Suspect]
     Active Substance: ELEXACAFTOR\IVACAFTOR\TEZACAFTOR
     Indication: Cystic fibrosis
     Dosage: UNK
     Route: 061
  2. TRIKAFTA [Suspect]
     Active Substance: ELEXACAFTOR\IVACAFTOR\TEZACAFTOR
     Dosage: ORANGE PILL IN PM; NO 150MG IVA PILL
     Route: 061
  3. TRIKAFTA [Suspect]
     Active Substance: ELEXACAFTOR\IVACAFTOR\TEZACAFTOR
     Dosage: ORANGE PILL TWICE A DAY; CUT OUT THE PM DOSE ENTIRELY
     Route: 061
  4. MELATONIN [Suspect]
     Active Substance: MELATONIN
     Indication: Product used for unknown indication
     Dosage: UNK
     Route: 065

REACTIONS (9)
  - Hospitalisation [Unknown]
  - Mental disorder [Not Recovered/Not Resolved]
  - Insomnia [Unknown]
  - Cerebral disorder [Unknown]
  - Feeling abnormal [Unknown]
  - Product dose omission issue [Unknown]
  - Insurance issue [Unknown]
  - Fatigue [Recovering/Resolving]
  - Brain fog [Recovering/Resolving]
